FAERS Safety Report 17756657 (Version 1)
Quarter: 2020Q2

REPORT INFORMATION
  Report Type: Report from Study
  Country: US (occurrence: US)
  Receive Date: 20200507
  Receipt Date: 20200507
  Transmission Date: 20200714
  Serious: Yes (Hospitalization)
  Sender: FDA-Public Use
  Company Number: US-GLAXOSMITHKLINE-US2020AMR071460

PATIENT
  Age: 80 Year
  Sex: Female

DRUGS (2)
  1. NIRAPARIB [Suspect]
     Active Substance: NIRAPARIB
     Indication: OVARIAN CANCER
     Dosage: 100 MG, QD
  2. NIRAPARIB [Suspect]
     Active Substance: NIRAPARIB
     Dosage: 200 MG, QD
     Dates: start: 20200428

REACTIONS (6)
  - Dyspepsia [Unknown]
  - Arthralgia [Unknown]
  - Condition aggravated [Unknown]
  - Hospitalisation [Unknown]
  - Blood pressure increased [Unknown]
  - Taste disorder [Unknown]
